FAERS Safety Report 4999761-2 (Version None)
Quarter: 2006Q2

REPORT INFORMATION
  Report Type: 
  Country: None (occurrence: None)
  Receive Date: 20060511
  Receipt Date: 20060427
  Transmission Date: 20061013
  Serious: Yes (Other)
  Sender: FDA-Public Use
  Company Number: PT-GLAXOSMITHKLINE-B0423073A

PATIENT
  Age: 63 Year
  Sex: Female

DRUGS (1)
  1. CEFORTAM [Suspect]
     Indication: INFECTION
     Dosage: 1G PER DAY
     Route: 065
     Dates: start: 20060427, end: 20060427

REACTIONS (4)
  - ANXIETY [None]
  - PHARMACEUTICAL PRODUCT COMPLAINT [None]
  - PRURITUS [None]
  - TREMOR [None]
